FAERS Safety Report 15367967 (Version 7)
Quarter: 2020Q1

REPORT INFORMATION
  Report Type: Report from Study
  Country: US (occurrence: US)
  Receive Date: 20180910
  Receipt Date: 20200221
  Transmission Date: 20200409
  Serious: No
  Sender: FDA-Public Use
  Company Number: US-SA-2018SA253370

PATIENT
  Age: 36 Year
  Sex: Female

DRUGS (3)
  1. DUPILUMAB [Suspect]
     Active Substance: DUPILUMAB
     Indication: DERMATITIS ATOPIC
     Dosage: 300 MG, QOW
     Route: 058
     Dates: start: 20180807, end: 201903
  2. DUPILUMAB [Suspect]
     Active Substance: DUPILUMAB
     Indication: ECZEMA
  3. DUPILUMAB [Suspect]
     Active Substance: DUPILUMAB
     Indication: RASH

REACTIONS (4)
  - Blister [Unknown]
  - Oral herpes [Recovered/Resolved]
  - Oral herpes [Unknown]
  - Product use in unapproved indication [Unknown]
